FAERS Safety Report 7828341-6 (Version None)
Quarter: 2011Q3

REPORT INFORMATION
  Report Type: 
  Country: None (occurrence: None)
  Receive Date: 20110901
  Receipt Date: 20110415
  Transmission Date: 20111222
  Serious: Yes (Hospitalization, Other)
  Sender: FDA-Public Use
  Company Number: 264878USA

PATIENT
  Age: 28 Year
  Sex: Female

DRUGS (1)
  1. METOCLOPRAMIDE [Suspect]
     Indication: LACTATION DISORDER
     Dosage: 40 MG (10 MG, 4 IN 24 HR), ORAL
     Route: 048
     Dates: start: 20101219, end: 20110121

REACTIONS (26)
  - TACHYCARDIA [None]
  - VISION BLURRED [None]
  - CONSTIPATION [None]
  - NAUSEA [None]
  - SEDATION [None]
  - FEELING JITTERY [None]
  - AKATHISIA [None]
  - DYSKINESIA [None]
  - TEARFULNESS [None]
  - ADVERSE DRUG REACTION [None]
  - ASTHENIA [None]
  - DECREASED APPETITE [None]
  - ALTERED STATE OF CONSCIOUSNESS [None]
  - TREMOR [None]
  - NERVOUSNESS [None]
  - PALPITATIONS [None]
  - VERTIGO [None]
  - ABDOMINAL PAIN [None]
  - FATIGUE [None]
  - RESTLESSNESS [None]
  - PANIC REACTION [None]
  - FEELING ABNORMAL [None]
  - SOMNOLENCE [None]
  - EXTRAPYRAMIDAL DISORDER [None]
  - ANXIETY [None]
  - HEADACHE [None]
